FAERS Safety Report 8500173-5 (Version None)
Quarter: 2012Q3

REPORT INFORMATION
  Report Type: 
  Country: None (occurrence: None)
  Receive Date: 20120710
  Receipt Date: 20120706
  Transmission Date: 20120928
  Serious: Yes (Other)
  Sender: FDA-Public Use
  Company Number: US-PFIZER INC-2012158525

PATIENT
  Sex: Female

DRUGS (2)
  1. ZOLOFT [Suspect]
     Dosage: 50 MG, UNK
     Dates: start: 20030717
  2. PROTONIX [Suspect]
     Dosage: UNK

REACTIONS (6)
  - ACCIDENT AT WORK [None]
  - HEAD INJURY [None]
  - DYSPHAGIA [None]
  - NERVE INJURY [None]
  - AMNESIA [None]
  - GASTROOESOPHAGEAL REFLUX DISEASE [None]
